FAERS Safety Report 11746849 (Version 1)
Quarter: 2015Q4

REPORT INFORMATION
  Report Type: Spontaneous
  Country: NL (occurrence: NL)
  Receive Date: 20151117
  Receipt Date: 20151117
  Transmission Date: 20160304
  Serious: Yes (Other)
  Sender: FDA-Public Use
  Company Number: NL-PFIZER INC-2015384930

PATIENT
  Age: 85 Year
  Sex: Female

DRUGS (7)
  1. AMIODARONE HCL [Suspect]
     Active Substance: AMIODARONE HYDROCHLORIDE
     Indication: ARRHYTHMIA
     Dosage: 1 DF, DAILY
     Route: 048
     Dates: start: 20141121
  2. CALCICHEW D3 [Concomitant]
     Active Substance: CALCIUM\CHOLECALCIFEROL
     Dosage: UNK
  3. BUMETANIDE. [Concomitant]
     Active Substance: BUMETANIDE
     Dosage: UNK
  4. HYDROCHLOROTHIAZIDE/LOSARTAN POTASSIUM [Concomitant]
     Dosage: UNK
  5. METOPROLOL [Concomitant]
     Active Substance: METOPROLOL
     Dosage: UNK
  6. ACENOCOUMAROL [Concomitant]
     Active Substance: ACENOCOUMAROL
     Dosage: UNK
  7. AMIODARONE HCL [Suspect]
     Active Substance: AMIODARONE HYDROCHLORIDE
     Dosage: UNK
     Route: 065

REACTIONS (7)
  - Dizziness [Not Recovered/Not Resolved]
  - Respiratory tract infection [Not Recovered/Not Resolved]
  - Cheilitis [Not Recovered/Not Resolved]
  - Dysgeusia [Not Recovered/Not Resolved]
  - Nausea [Not Recovered/Not Resolved]
  - Tinea infection [Not Recovered/Not Resolved]
  - Visual acuity reduced [Not Recovered/Not Resolved]

NARRATIVE: CASE EVENT DATE: 20150215
